FAERS Safety Report 15667833 (Version 1)
Quarter: 2018Q4

REPORT INFORMATION
  Report Type: Spontaneous
  Country: US (occurrence: US)
  Receive Date: 20181128
  Receipt Date: 20181128
  Transmission Date: 20190205
  Serious: No
  Sender: FDA-Public Use
  Company Number: US-BAUSCH-BL-2018-001519

PATIENT
  Age: 59 Year
  Sex: Male
  Weight: 74.46 kg

DRUGS (3)
  1. UCERIS [Suspect]
     Active Substance: BUDESONIDE
     Route: 054
     Dates: start: 2017
  2. APRISO [Suspect]
     Active Substance: MESALAMINE
     Indication: ROUTINE HEALTH MAINTENANCE
     Dosage: ABOUT 2 YEARS AGO
     Route: 048
     Dates: start: 2016
  3. UCERIS [Suspect]
     Active Substance: BUDESONIDE
     Indication: COLITIS ULCERATIVE
     Route: 054
     Dates: start: 2017

REACTIONS (4)
  - Product container issue [Not Recovered/Not Resolved]
  - Drug ineffective [Not Recovered/Not Resolved]
  - Product quality issue [Unknown]
  - Colitis [Not Recovered/Not Resolved]

NARRATIVE: CASE EVENT DATE: 201801
